FAERS Safety Report 6702868-2 (Version None)
Quarter: 2010Q2

REPORT INFORMATION
  Report Type: 
  Country: None (occurrence: None)
  Receive Date: 20100429
  Receipt Date: 20100419
  Transmission Date: 20101027
  Serious: Yes (Hospitalization)
  Sender: FDA-Public Use
  Company Number: JP-ABBOTT-10P-087-0636175-00

PATIENT
  Sex: Female
  Weight: 53 kg

DRUGS (9)
  1. HUMIRA [Suspect]
     Indication: RHEUMATOID ARTHRITIS
     Route: 058
     Dates: start: 20090917
  2. METHOTREXATE [Concomitant]
     Indication: RHEUMATOID ARTHRITIS
     Dosage: 8 MG/WEEK
     Route: 048
     Dates: start: 20040501
  3. LOXOPROFEN SODIUM HYDRATE [Concomitant]
     Indication: RHEUMATOID ARTHRITIS
     Route: 048
  4. MISOPROSTOL [Concomitant]
     Indication: GASTRIC ULCER
     Route: 048
  5. ALFACALCIDOL [Concomitant]
     Indication: RHEUMATOID ARTHRITIS
     Dosage: 2 CAPSULES DAILY
     Route: 048
  6. PREDNISOLONE [Concomitant]
     Indication: RHEUMATOID ARTHRITIS
     Dosage: 7.5 MG DAILY
     Route: 048
  7. PREDNISOLONE [Concomitant]
  8. FOLIC ACID [Concomitant]
     Indication: DRUG USE FOR UNKNOWN INDICATION
     Dosage: 5 MG/WEEK
  9. CALCITRIOL [Concomitant]
     Indication: OSTEOPOROSIS

REACTIONS (4)
  - ILEUS [None]
  - JOINT DESTRUCTION [None]
  - JOINT INSTABILITY [None]
  - RECTAL ULCER [None]
